FAERS Safety Report 5349051-3 (Version None)
Quarter: 2007Q2

REPORT INFORMATION
  Report Type: 
  Country: None (occurrence: None)
  Receive Date: 20070516
  Receipt Date: 20070119
  Transmission Date: 20071010
  Serious: No
  Sender: FDA-Public Use
  Company Number: 200710761US

PATIENT
  Sex: Male

DRUGS (1)
  1. APIDRA [Suspect]
     Dosage: TID

REACTIONS (3)
  - DYSPNOEA [None]
  - FATIGUE [None]
  - HYPERSENSITIVITY [None]
